FAERS Safety Report 18332754 (Version 1)
Quarter: 2020Q4

REPORT INFORMATION
  Report Type: Spontaneous
  Country: ZA (occurrence: ZA)
  Receive Date: 20201001
  Receipt Date: 20201001
  Transmission Date: 20210113
  Serious: Yes (Other)
  Sender: FDA-Public Use
  Company Number: ZA-LUPIN PHARMACEUTICALS INC.-2020-06616

PATIENT
  Age: 40 Year
  Sex: Female

DRUGS (18)
  1. EFAVIRENZ. [Suspect]
     Active Substance: EFAVIRENZ
     Indication: HIV INFECTION
  2. ATAZANAVIR + RITONAVIR [Concomitant]
     Active Substance: ATAZANAVIR\RITONAVIR
     Indication: ANTIRETROVIRAL THERAPY
     Dosage: UNK, RITONAVIR-BOOSTED ATAZANAVIR
     Route: 065
     Dates: start: 20091224, end: 20140319
  3. LAMIVUDINE. [Suspect]
     Active Substance: LAMIVUDINE
     Indication: HIV INFECTION
     Dosage: UNK
     Route: 065
     Dates: start: 20171121, end: 20180227
  4. EFAVIRENZ. [Suspect]
     Active Substance: EFAVIRENZ
     Indication: ANTIRETROVIRAL THERAPY
     Dosage: UNK
     Route: 065
     Dates: start: 2007, end: 20091224
  5. DOLUTEGRAVIR [Interacting]
     Active Substance: DOLUTEGRAVIR
     Indication: HIV INFECTION
     Dosage: 50 MILLIGRAM, QD, (IN THE MORNING)
     Route: 065
  6. RIFAMPIN. [Interacting]
     Active Substance: RIFAMPIN
     Indication: TUBERCULOSIS
     Dosage: UNK
     Route: 065
     Dates: start: 201706, end: 201802
  7. EMTRICITABINE;TENOFOVIR [Concomitant]
     Active Substance: EMTRICITABINE\TENOFOVIR
     Indication: ANTIRETROVIRAL THERAPY
     Dosage: UNK
     Route: 065
     Dates: start: 20091224, end: 20140319
  8. ZIDOVUDINE. [Suspect]
     Active Substance: ZIDOVUDINE
     Indication: ANTIRETROVIRAL THERAPY
     Dosage: UNK
     Route: 065
     Dates: start: 2007, end: 20091224
  9. DOLUTEGRAVIR [Interacting]
     Active Substance: DOLUTEGRAVIR
     Dosage: UNK
     Route: 065
     Dates: end: 20180227
  10. ABACAVIR/LAMIVUDINE [ABACAVIR HYDROCHLORIDE;LAMIVUDINE] [Concomitant]
     Indication: ANTIRETROVIRAL THERAPY
     Dosage: UNK
     Route: 065
     Dates: end: 20171121
  11. ABACAVIR/LAMIVUDINE [ABACAVIR HYDROCHLORIDE;LAMIVUDINE] [Concomitant]
     Indication: HIV INFECTION
  12. DOLUTEGRAVIR [Interacting]
     Active Substance: DOLUTEGRAVIR
     Indication: ANTIRETROVIRAL THERAPY
     Dosage: 50 MILLIGRAM, BID
     Route: 065
     Dates: start: 20171121
  13. EMTRICITABINE;TENOFOVIR [Concomitant]
     Active Substance: EMTRICITABINE\TENOFOVIR
     Indication: HIV INFECTION
  14. LAMIVUDINE. [Suspect]
     Active Substance: LAMIVUDINE
     Indication: ANTIRETROVIRAL THERAPY
     Dosage: UNK
     Route: 065
     Dates: start: 2007, end: 20091224
  15. LOPINAVIR + RITONAVIR [Suspect]
     Active Substance: LOPINAVIR\RITONAVIR
     Indication: HIV INFECTION
  16. ATAZANAVIR + RITONAVIR [Concomitant]
     Active Substance: ATAZANAVIR\RITONAVIR
     Indication: HIV INFECTION
     Dosage: UNK
     Route: 065
     Dates: start: 20170608, end: 20171121
  17. ZIDOVUDINE. [Suspect]
     Active Substance: ZIDOVUDINE
     Indication: HIV INFECTION
     Dosage: UNK
     Route: 065
     Dates: start: 20171121, end: 20180227
  18. LOPINAVIR + RITONAVIR [Suspect]
     Active Substance: LOPINAVIR\RITONAVIR
     Indication: ANTIRETROVIRAL THERAPY
     Dosage: UNK, RITONAVIR-BOOSTED LOPINAVIR
     Route: 065
     Dates: end: 20170608

REACTIONS (4)
  - Virologic failure [Unknown]
  - Drug interaction [Unknown]
  - Pathogen resistance [Unknown]
  - Drug resistance [Unknown]

NARRATIVE: CASE EVENT DATE: 200909
